FAERS Safety Report 7125010-5 (Version None)
Quarter: 2010Q4

REPORT INFORMATION
  Report Type: 
  Country: None (occurrence: None)
  Receive Date: 20101123
  Receipt Date: 20101123
  Transmission Date: 20110411
  Serious: Yes (Hospitalization)
  Sender: FDA-Public Use
  Company Number: None

PATIENT
  Sex: Female

DRUGS (1)
  1. BETASERON [Suspect]
     Indication: MULTIPLE SCLEROSIS
     Dosage: 0.3MG EVERY OTHER DAY SUBCUTANEOUSLY
     Route: 058
     Dates: start: 20000101, end: 20100101

REACTIONS (1)
  - INJECTION SITE INFECTION [None]
